FAERS Safety Report 22182610 (Version 1)
Quarter: 2023Q2

REPORT INFORMATION
  Report Type: Spontaneous
  Country: US (occurrence: None)
  Receive Date: 20230406
  Receipt Date: 20230406
  Transmission Date: 20230721
  Serious: Yes (Life-Threatening)
  Sender: FDA-Public Use
  Company Number: None

PATIENT
  Sex: 0

DRUGS (1)
  1. TECLISTAMAB-CQYV [Suspect]
     Active Substance: TECLISTAMAB-CQYV

REACTIONS (8)
  - Tachycardia [None]
  - Blood culture positive [None]
  - Pseudomonas test positive [None]
  - Infectious pleural effusion [None]
  - Lung infiltration [None]
  - Pancytopenia [None]
  - Acute kidney injury [None]
  - Oropharyngeal pain [None]

NARRATIVE: CASE EVENT DATE: 20230302
